FAERS Safety Report 8835590 (Version 2)
Quarter: 2012Q4

REPORT INFORMATION
  Report Type: 
  Country: DE (occurrence: DE)
  Receive Date: 20121011
  Receipt Date: 20121120
  Transmission Date: 20130627
  Serious: Yes (Disabling, Other)
  Sender: FDA-Public Use
  Company Number: PHHY2012DE088500

PATIENT
  Sex: Female
  Weight: 62 kg

DRUGS (5)
  1. ZOMETA [Suspect]
     Indication: METASTASES TO BONE
     Dosage: Once every 4 weeks
     Route: 042
     Dates: start: 201109
  2. VITAMIN C [Concomitant]
     Indication: IMMUNE SYSTEM DISORDER
     Dosage: 100 ml every 4 weeks
     Route: 042
     Dates: start: 201103
  3. REPAGLINIDE [Concomitant]
     Indication: DIABETES MELLITUS
     Dosage: 3 DF, BID
  4. ANASTROZOLE [Concomitant]
     Dosage: 1 DF, QD
  5. CALCIUM [Concomitant]
     Dosage: 1 DF, QD

REACTIONS (5)
  - Pain [Unknown]
  - Musculoskeletal stiffness [Unknown]
  - Oedema peripheral [Unknown]
  - Bone pain [Unknown]
  - Urticaria [Unknown]
